FAERS Safety Report 25226601 (Version 2)
Quarter: 2025Q2

REPORT INFORMATION
  Report Type: Spontaneous
  Country: IT (occurrence: IT)
  Receive Date: 20250422
  Receipt Date: 20250602
  Transmission Date: 20250716
  Serious: Yes (Other)
  Sender: NOVARTIS
  Company Number: IT-002147023-NVSC2025IT064579

PATIENT
  Age: 18 Year
  Sex: Female
  Weight: 60 kg

DRUGS (4)
  1. DABRAFENIB [Suspect]
     Active Substance: DABRAFENIB
     Indication: BRAF V600E mutation positive
     Dosage: 300 MG, QD
     Route: 065
  2. DABRAFENIB [Suspect]
     Active Substance: DABRAFENIB
     Indication: Naevoid melanoma
  3. TRAMETINIB [Suspect]
     Active Substance: TRAMETINIB
     Indication: BRAF V600E mutation positive
     Dosage: 2 MG, QD
     Route: 065
     Dates: start: 20230824
  4. TRAMETINIB [Suspect]
     Active Substance: TRAMETINIB
     Indication: Naevoid melanoma
     Route: 065

REACTIONS (5)
  - Ejection fraction decreased [Recovered/Resolved]
  - Pyrexia [Unknown]
  - Rash [Unknown]
  - Diarrhoea [Unknown]
  - Off label use [Unknown]

NARRATIVE: CASE EVENT DATE: 20241207
